FAERS Safety Report 6322959-8 (Version None)
Quarter: 2009Q3

REPORT INFORMATION
  Report Type: 
  Country: None (occurrence: None)
  Receive Date: 20090824
  Receipt Date: 20090223
  Transmission Date: 20100115
  Serious: No
  Sender: FDA-Public Use
  Company Number: US-ABBOTT-09P-163-0558851-00

PATIENT
  Sex: Male

DRUGS (13)
  1. NIASPAN [Suspect]
     Indication: BLOOD CHOLESTEROL INCREASED
     Route: 048
     Dates: start: 20090219
  2. CITALOPRAM [Concomitant]
     Indication: DRUG USE FOR UNKNOWN INDICATION
  3. VALSARTAN [Concomitant]
     Indication: DRUG USE FOR UNKNOWN INDICATION
  4. COUMADIN [Concomitant]
     Indication: DRUG USE FOR UNKNOWN INDICATION
  5. DIGOXIN [Concomitant]
     Indication: DRUG USE FOR UNKNOWN INDICATION
  6. SIMVASTATIN [Concomitant]
     Indication: DRUG USE FOR UNKNOWN INDICATION
  7. VITAMIN B-12 [Concomitant]
     Indication: DRUG USE FOR UNKNOWN INDICATION
  8. VITAMINS [Concomitant]
     Indication: DRUG USE FOR UNKNOWN INDICATION
  9. FISH OIL [Concomitant]
     Indication: DRUG USE FOR UNKNOWN INDICATION
  10. FUROSEMIDE [Concomitant]
     Indication: DRUG USE FOR UNKNOWN INDICATION
  11. SPIRONOLACTONE [Concomitant]
     Indication: DRUG USE FOR UNKNOWN INDICATION
  12. LORATADINE [Concomitant]
     Indication: DRUG USE FOR UNKNOWN INDICATION
  13. LANSOPRAZOLE [Concomitant]
     Indication: DRUG USE FOR UNKNOWN INDICATION

REACTIONS (1)
  - PRURITUS [None]
